FAERS Safety Report 8472743-4 (Version None)
Quarter: 2012Q2

REPORT INFORMATION
  Report Type: 
  Country: None (occurrence: None)
  Receive Date: 20120627
  Receipt Date: 20120622
  Transmission Date: 20120825
  Serious: Yes (Death, Life-Threatening, Hospitalization)
  Sender: FDA-Public Use
  Company Number: US-CELGENEUS-163-21660-12051642

PATIENT
  Sex: Female
  Weight: 85.8 kg

DRUGS (50)
  1. ABRAXANE [Suspect]
     Dosage: 228 MILLIGRAM
     Route: 041
     Dates: start: 20120510, end: 20120524
  2. GEMCITABINE [Suspect]
     Dosage: 1820 MILLIGRAM
     Route: 041
     Dates: start: 20120315
  3. NEULASTA [Concomitant]
     Indication: NEUTROPENIA
     Dosage: 6 MILLIGRAM
     Route: 058
     Dates: start: 20120427, end: 20120427
  4. NEULASTA [Concomitant]
  5. ALLOPURINOL [Concomitant]
     Dosage: 200 MILLIGRAM
     Route: 048
     Dates: start: 20120519, end: 20120528
  6. ALLOPURINOL [Concomitant]
     Dosage: 100 MILLIGRAM
     Route: 048
     Dates: start: 20120528, end: 20120614
  7. VANCOMYCIN [Concomitant]
     Dosage: 1 GRAM
     Route: 041
     Dates: start: 20120526, end: 20120526
  8. TOLTERODINE TARTRATE [Concomitant]
     Dosage: 4 MILLIGRAM
     Route: 048
     Dates: start: 20120528, end: 20120611
  9. LORAZEPAM [Concomitant]
     Indication: ANXIETY
     Dosage: .5 MILLIGRAM
     Route: 048
     Dates: end: 20120614
  10. LISINOPRIL [Concomitant]
     Indication: HYPERTENSION
     Dosage: 10/12.5MG
     Route: 048
     Dates: end: 20120513
  11. HYDROCODONE BITARTRATE + ACETAMINOPHEN [Concomitant]
     Indication: ARTHRITIS
     Dosage: 2.5/750MG
     Route: 048
     Dates: end: 20120526
  12. VANCOMYCIN [Concomitant]
     Dosage: 1.5 GRAM
     Route: 041
     Dates: start: 20120527, end: 20120527
  13. PANTOPRAZOLE [Concomitant]
     Dosage: 40 MILLIGRAM
     Route: 041
     Dates: start: 20120525, end: 20120528
  14. HEPARIN [Concomitant]
     Dosage: 5000 UNITS
     Route: 058
     Dates: start: 20120526, end: 20120527
  15. ABRAXANE [Suspect]
     Dosage: 228 MILLIGRAM
     Route: 041
     Dates: start: 20120315
  16. CITALOPRAM HYDROBROMIDE [Concomitant]
     Indication: ANXIETY
     Dosage: 40 MILLIGRAM
     Route: 048
     Dates: end: 20120614
  17. CELEBREX [Concomitant]
     Indication: ARTHRITIS
     Dosage: 200 MILLIGRAM
     Route: 048
     Dates: end: 20120526
  18. ZOFRAN [Concomitant]
     Indication: NAUSEA
     Dosage: 8 MILLIGRAM
     Route: 048
     Dates: start: 20120315, end: 20120614
  19. AUGMENTIN '125' [Concomitant]
     Indication: STENT PLACEMENT
     Dosage: 875-125MG
     Route: 048
     Dates: start: 20120519, end: 20120524
  20. ALBUMIN [Concomitant]
     Dosage: 25 GRAM
     Route: 041
     Dates: start: 20120608, end: 20120610
  21. DILAUDID [Concomitant]
     Indication: THERAPEUTIC PROCEDURE
     Dosage: .4 MILLIGRAM
     Route: 041
     Dates: start: 20120614, end: 20120614
  22. MORPHINE [Concomitant]
     Dosage: 2 MILLIGRAM
     Route: 041
     Dates: start: 20120605, end: 20120606
  23. FENTANYL [Concomitant]
     Dosage: 2 MILLILITER
     Route: 041
     Dates: start: 20120606, end: 20120614
  24. GEMCITABINE [Suspect]
     Dosage: 1820 MILLIGRAM
     Route: 041
     Dates: start: 20120510, end: 20120524
  25. COMPAZINE [Concomitant]
     Indication: NAUSEA
     Dosage: 10 MILLIGRAM
     Route: 048
     Dates: start: 20120315, end: 20120614
  26. FLOMAX [Concomitant]
     Dosage: .4 MILLIGRAM
     Route: 048
     Dates: start: 20120519, end: 20120526
  27. PANTOPRAZOLE [Concomitant]
     Dosage: 4 MILLIGRAM
     Route: 048
     Dates: start: 20120530, end: 20120606
  28. HEPARIN [Concomitant]
     Dosage: 18 UNITS
     Route: 041
     Dates: start: 20120527, end: 20120530
  29. INSULIN LISPRO [Concomitant]
     Route: 065
     Dates: start: 20120529, end: 20120614
  30. LANSOPRAZOLE [Concomitant]
     Dosage: 30 MILLIGRAM
     Route: 065
     Dates: start: 20120612, end: 20120614
  31. POTASSIUM CHLORIDE [Concomitant]
     Dosage: 20 MILLIEQUIVALENTS
     Route: 065
     Dates: start: 20120510, end: 20120526
  32. ZOSYN [Concomitant]
     Dosage: 4.5 GRAM
     Route: 041
     Dates: start: 20120525, end: 20120608
  33. AZITHROMYCIN [Concomitant]
     Dosage: 500 MILLIGRAM
     Route: 041
     Dates: start: 20120528, end: 20120530
  34. HEPARIN [Concomitant]
     Route: 065
     Dates: start: 20120525, end: 20120525
  35. DESMOPRESSIN ACETATE [Concomitant]
     Dosage: 20 MICROGRAM
     Route: 041
     Dates: start: 20120609, end: 20120609
  36. EPINEPHRINE [Concomitant]
     Dosage: 1 MILLIGRAM
     Route: 041
     Dates: start: 20120609, end: 20120609
  37. LANSOPRAZOLE [Concomitant]
     Dosage: 20-80MG
     Route: 041
     Dates: start: 20120601, end: 20120606
  38. SODIUM BICARBONATE [Concomitant]
     Dosage: 50 MILLIEQUIVALENTS
     Route: 041
     Dates: start: 20120609, end: 20120609
  39. VECURONIUM BROMIDE [Concomitant]
     Indication: THERAPEUTIC PROCEDURE
     Dosage: 6 MILLIGRAM
     Route: 041
     Dates: start: 20120610, end: 20120610
  40. TRAZODONE HCL [Concomitant]
     Indication: ANXIETY
     Dosage: 50 MILLIGRAM
     Route: 048
     Dates: end: 20120606
  41. NYSTATIN [Concomitant]
     Dosage: 180 MILLIGRAM
     Route: 048
     Dates: start: 20120404, end: 20120412
  42. POTASSIUM CHLORIDE [Concomitant]
     Dosage: 10 MILLIEQUIVALENTS
     Route: 041
     Dates: start: 20120527, end: 20120528
  43. LEVOFLOXACIN [Concomitant]
     Route: 065
     Dates: start: 20120525, end: 20120526
  44. CALCIUM GLUCONATE [Concomitant]
     Dosage: 1 GRAM
     Route: 041
     Dates: start: 20120526, end: 20120602
  45. CHLORHEXIDINE GLUCONATE [Concomitant]
     Indication: ORAL DISORDER
     Dosage: 15 MILLILITER
     Route: 065
     Dates: start: 20120612, end: 20120614
  46. NYSTATIN [Concomitant]
     Indication: MUCOSAL INFECTION
  47. ZOSYN [Concomitant]
     Route: 065
     Dates: start: 20120527
  48. ACETYLCYSTEINE [Concomitant]
     Dosage: 600 MILLIGRAM
     Route: 041
     Dates: start: 20120606, end: 20120611
  49. LANSOPRAZOLE [Concomitant]
     Dosage: 4 MILLIGRAM
     Route: 041
     Dates: start: 20120526, end: 20120527
  50. PROPOFOL [Concomitant]
     Dosage: 7.65 MILLILITER
     Route: 041
     Dates: start: 20120606, end: 20120614

REACTIONS (5)
  - ANAEMIA [None]
  - HYPERURICAEMIA [None]
  - NEPHROLITHIASIS [None]
  - PNEUMONITIS [None]
  - RENAL FAILURE ACUTE [None]
